FAERS Safety Report 4441507-0 (Version None)
Quarter: 2004Q3

REPORT INFORMATION
  Report Type: 
  Country: None (occurrence: None)
  Receive Date: 20040728
  Receipt Date: 20040521
  Transmission Date: 20050211
  Serious: No
  Sender: FDA-Public Use
  Company Number: USA040567257

PATIENT
  Age: 68 Year
  Sex: Male
  Weight: 73 kg

DRUGS (3)
  1. STRATTERA [Suspect]
     Indication: ATTENTION DEFICIT/HYPERACTIVITY DISORDER
     Dosage: 40 MG DAY
     Dates: start: 20040501
  2. FLUOXETINE HCL [Concomitant]
  3. THYROID TAB [Concomitant]

REACTIONS (3)
  - FEELING ABNORMAL [None]
  - LIBIDO DECREASED [None]
  - URINE FLOW DECREASED [None]
